FAERS Safety Report 7439858-0 (Version None)
Quarter: 2011Q2

REPORT INFORMATION
  Report Type: 
  Country: None (occurrence: None)
  Receive Date: 20110427
  Receipt Date: 20110415
  Transmission Date: 20111010
  Serious: Yes (Hospitalization)
  Sender: FDA-Public Use
  Company Number: US-SANOFI-AVENTIS-2011SA024371

PATIENT
  Age: 86 Year
  Sex: Male

DRUGS (10)
  1. CHLORTHALIDONE [Concomitant]
  2. PLAVIX [Interacting]
     Route: 065
     Dates: start: 20110401
  3. ALBUTEROL SULFATE AND IPRATROPIUM BROMIDE [Concomitant]
     Dosage: NEBULIZERS
  4. GEMFIBROZIL [Concomitant]
  5. GLIPIZIDE [Interacting]
     Route: 065
  6. PREDNISONE [Concomitant]
     Dosage: PULSED DOSE
  7. PLAVIX [Suspect]
     Indication: STENT PLACEMENT
     Route: 065
     Dates: start: 20110401
  8. METFORMIN [Concomitant]
  9. ASPIRIN [Concomitant]
  10. ATACAND [Concomitant]

REACTIONS (2)
  - HYPOGLYCAEMIA [None]
  - DRUG INTERACTION [None]
